FAERS Safety Report 17893414 (Version 2)
Quarter: 2020Q4

REPORT INFORMATION
  Report Type: Report from Study
  Country: US (occurrence: US)
  Receive Date: 20200615
  Receipt Date: 20201124
  Transmission Date: 20210113
  Serious: No
  Sender: FDA-Public Use
  Company Number: US-SHIRE-US202018384

PATIENT
  Sex: Female

DRUGS (1)
  1. TEDUGLUTIDE [Suspect]
     Active Substance: TEDUGLUTIDE
     Indication: PRODUCT USED FOR UNKNOWN INDICATION
     Dosage: 0.2770 UNK, QD
     Route: 058

REACTIONS (4)
  - Limb injury [Unknown]
  - Ligament sprain [Unknown]
  - Sinusitis [Unknown]
  - Foot fracture [Not Recovered/Not Resolved]
